FAERS Safety Report 4334712-5 (Version None)
Quarter: 2004Q2

REPORT INFORMATION
  Report Type: 
  Country: None (occurrence: None)
  Receive Date: 20040407
  Receipt Date: 20040407
  Transmission Date: 20050107
  Serious: Yes (Death)
  Sender: FDA-Public Use
  Company Number: None

PATIENT
  Age: 58 Year
  Sex: Female
  Weight: 65.7716 kg

DRUGS (13)
  1. GEMCITABINE 1500 MG/M2  LILLY [Suspect]
     Indication: PANCREATIC CARCINOMA
     Dosage: 2730 MG EVERY WEEK INTRAVENOUS
     Route: 042
     Dates: start: 20040116, end: 20040310
  2. GEMCITABINE  1500MG/M2  LILLY [Suspect]
  3. ACTOS [Concomitant]
  4. ALTACE [Concomitant]
  5. PROMETHAZINE [Concomitant]
  6. MARINOL [Concomitant]
  7. PROTONIX [Concomitant]
  8. SENNOKOT [Concomitant]
  9. LOVENOX [Concomitant]
  10. AMBIEN [Concomitant]
  11. MS CONTIN [Concomitant]
  12. ROXANOL [Concomitant]
  13. SCAPALOMINE [Concomitant]

REACTIONS (1)
  - DISEASE PROGRESSION [None]
